FAERS Safety Report 4622111-8 (Version None)
Quarter: 2005Q1

REPORT INFORMATION
  Report Type: 
  Country: None (occurrence: None)
  Receive Date: 20050329
  Receipt Date: 20031125
  Transmission Date: 20050727
  Serious: Yes (Other)
  Sender: FDA-Public Use
  Company Number: 10103

PATIENT
  Age: 66 Year
  Sex: Female

DRUGS (11)
  1. METHOTREXATE [Suspect]
     Dosage: 22.5 MG WEEKLY
     Dates: start: 20020801
  2. ACIPHEX [Concomitant]
  3. AZATHIOPRINE [Concomitant]
  4. DICLOFENAC SODIUM [Concomitant]
  5. FOLIC ACID [Concomitant]
  6. TRIAMTERENE AND HYDROCHLOROTHIAZIDE [Concomitant]
  7. HYDROXYCHLOROQUINE PHOSPHATE [Concomitant]
  8. ISRADIPINE [Concomitant]
  9. METOPROLOL SUCCINATE [Concomitant]
  10. PREDNISONE [Concomitant]
  11. SALMETEROL XINAFOATE [Concomitant]

REACTIONS (3)
  - BLOOD PRESSURE INCREASED [None]
  - RENAL FAILURE [None]
  - RENAL VESSEL DISORDER [None]
